FAERS Safety Report 6091635-1 (Version None)
Quarter: 2009Q1

REPORT INFORMATION
  Report Type: 
  Country: None (occurrence: None)
  Receive Date: 20090225
  Receipt Date: 20080401
  Transmission Date: 20090719
  Serious: No
  Sender: FDA-Public Use
  Company Number: A0715248A

PATIENT
  Age: 71 Year
  Sex: Female

DRUGS (3)
  1. VALTREX [Suspect]
     Indication: HERPES ZOSTER
     Dosage: 500MG PER DAY
     Route: 048
     Dates: start: 20080220, end: 20080227
  2. KLONOPIN [Concomitant]
  3. UNKNOWN MEDICATION [Concomitant]

REACTIONS (1)
  - DRUG INEFFECTIVE [None]
